FAERS Safety Report 25495180 (Version 1)
Quarter: 2025Q2

REPORT INFORMATION
  Report Type: Spontaneous
  Country: US (occurrence: US)
  Receive Date: 20250630
  Receipt Date: 20250630
  Transmission Date: 20250717
  Serious: Yes (Other)
  Sender: PFIZER
  Company Number: US-PFIZER INC-202500128886

PATIENT
  Age: 22 Year
  Sex: Female

DRUGS (2)
  1. XELJANZ XR [Interacting]
     Active Substance: TOFACITINIB CITRATE
  2. RASUVO [Interacting]
     Active Substance: METHOTREXATE SODIUM

REACTIONS (2)
  - Immunosuppression [Unknown]
  - Drug interaction [Unknown]
